FAERS Safety Report 16420802 (Version 1)
Quarter: 2019Q2

REPORT INFORMATION
  Report Type: Spontaneous
  Country: US (occurrence: US)
  Receive Date: 20190612
  Receipt Date: 20190612
  Transmission Date: 20190711
  Serious: No
  Sender: FDA-Public Use
  Company Number: US-US WORLDMEDS, LLC-USW201903-000529

PATIENT
  Sex: Male

DRUGS (1)
  1. LUCEMYRA [Suspect]
     Active Substance: LOFEXIDINE
     Indication: PRODUCT USED FOR UNKNOWN INDICATION
     Dates: start: 2019

REACTIONS (1)
  - Hypotension [Unknown]
